FAERS Safety Report 10674897 (Version 1)
Quarter: 2014Q4

REPORT INFORMATION
  Report Type: Spontaneous
  Country: US (occurrence: None)
  Receive Date: 20141223
  Receipt Date: 20141223
  Transmission Date: 20150529
  Serious: Yes (Hospitalization)
  Sender: FDA-Public Use
  Company Number: None

PATIENT
  Age: 67 Year
  Sex: Female

DRUGS (3)
  1. TAXOL [Suspect]
     Active Substance: PACLITAXEL
     Dates: end: 20141217
  2. CARBOPLATIN. [Suspect]
     Active Substance: CARBOPLATIN
     Dates: end: 20141217
  3. BEVACIZUMAB (RHUMAB VEGF) [Suspect]
     Active Substance: BEVACIZUMAB
     Dates: end: 20141217

REACTIONS (16)
  - Fatigue [None]
  - Red blood cell count decreased [None]
  - Hypophagia [None]
  - Haematocrit decreased [None]
  - Dehydration [None]
  - Fluid intake reduced [None]
  - Blood glucose increased [None]
  - Dizziness [None]
  - Asthenia [None]
  - Neutrophil count abnormal [None]
  - Blood sodium decreased [None]
  - Red cell distribution width increased [None]
  - Urobilinogen urine increased [None]
  - Hypersomnia [None]
  - Haemoglobin decreased [None]
  - Blood urea increased [None]

NARRATIVE: CASE EVENT DATE: 20141221
